FAERS Safety Report 5109737-2 (Version None)
Quarter: 2006Q3

REPORT INFORMATION
  Report Type: 
  Country: None (occurrence: None)
  Receive Date: 20060918
  Receipt Date: 20060907
  Transmission Date: 20061208
  Serious: Yes (Other)
  Sender: FDA-Public Use
  Company Number: DE-2006-026128

PATIENT
  Age: 40 Year
  Sex: Female

DRUGS (2)
  1. MIRENA [Suspect]
     Dosage: 20 UG/DAY, CONT, INTRA-UTERINE
     Route: 015
     Dates: start: 19980101, end: 20040101
  2. MIRENA [Suspect]
     Dosage: 20 UG/DAY, CONT, INTRA-UTERINE
     Route: 015
     Dates: start: 20040101

REACTIONS (1)
  - RETINAL ARTERY THROMBOSIS [None]
